FAERS Safety Report 19860103 (Version 1)
Quarter: 2021Q3

REPORT INFORMATION
  Report Type: Spontaneous
  Country: US (occurrence: US)
  Receive Date: 20210921
  Receipt Date: 20210921
  Transmission Date: 20211014
  Serious: Yes (Life-Threatening)
  Sender: FDA-Public Use
  Company Number: None

PATIENT
  Age: 52 Year
  Sex: Male
  Weight: 74.25 kg

DRUGS (2)
  1. DELTA9 [CANNABIDIOL\.DELTA.8?TETRAHYDROCANNABINOL\DEVICE\HERBALS] [Suspect]
     Active Substance: CANNABIDIOL\.DELTA.8-TETRAHYDROCANNABINOL\DEVICE\HERBALS
     Indication: SUBSTANCE USE
     Dates: start: 20210917, end: 20210917
  2. CLARITIN [Concomitant]
     Active Substance: LORATADINE

REACTIONS (1)
  - Tachycardia [None]

NARRATIVE: CASE EVENT DATE: 20210917
